FAERS Safety Report 5798736-3 (Version None)
Quarter: 2008Q3

REPORT INFORMATION
  Report Type: 
  Country: None (occurrence: None)
  Receive Date: 20080702
  Receipt Date: 20080619
  Transmission Date: 20090109
  Serious: Yes (Hospitalization)
  Sender: FDA-Public Use
  Company Number: JP-ABBOTT-08P-087-0460041-00

PATIENT
  Age: 79 Year
  Sex: Male

DRUGS (8)
  1. LEUPROLIDE ACETATE [Suspect]
     Indication: PROSTATE CANCER STAGE II
     Route: 058
     Dates: start: 20061210
  2. LEUPROLIDE ACETATE [Suspect]
     Dates: start: 20060925, end: 20061120
  3. BICALUTAMIDE [Concomitant]
     Indication: PROSTATE CANCER STAGE II
     Route: 048
  4. INSULIN ASPART [Concomitant]
     Indication: DIABETES MELLITUS
     Route: 058
     Dates: start: 20070227, end: 20070313
  5. INSULIN ASPART [Concomitant]
     Route: 058
     Dates: start: 20070314, end: 20080402
  6. INSULIN ASPART [Concomitant]
     Route: 058
     Dates: start: 20070403
  7. INSULIN [Concomitant]
     Indication: DIABETES MELLITUS
     Route: 058
     Dates: start: 20070226, end: 20070312
  8. INSULIN [Concomitant]
     Route: 058
     Dates: start: 20070313

REACTIONS (4)
  - ABDOMINAL PAIN [None]
  - DIARRHOEA [None]
  - LYMPHOMA [None]
  - WHITE BLOOD CELL COUNT DECREASED [None]
